FAERS Safety Report 6920717-4 (Version None)
Quarter: 2010Q3

REPORT INFORMATION
  Report Type: 
  Country: None (occurrence: None)
  Receive Date: 20100812
  Receipt Date: 20100809
  Transmission Date: 20110219
  Serious: Yes (Death)
  Sender: FDA-Public Use
  Company Number: DE-SANOFI-AVENTIS-2010SA035860

PATIENT
  Age: 78 Year
  Weight: 72 kg

DRUGS (3)
  1. PLAVIX [Suspect]
     Indication: ACUTE CORONARY SYNDROME
     Route: 048
     Dates: start: 20100323, end: 20100324
  2. PLAVIX [Suspect]
     Route: 048
     Dates: start: 20100324, end: 20100330
  3. ASPIRIN [Suspect]
     Route: 048

REACTIONS (1)
  - MYOCARDIAL INFARCTION [None]
